FAERS Safety Report 9704665 (Version 1)
Quarter: 2013Q4

REPORT INFORMATION
  Report Type: Spontaneous
  Country: US (occurrence: US)
  Receive Date: 20131122
  Receipt Date: 20131122
  Transmission Date: 20140711
  Serious: No
  Sender: FDA-Public Use
  Company Number: US-PFIZER INC-2013333595

PATIENT
  Age: 7 Decade
  Sex: Female

DRUGS (1)
  1. PREMARIN [Suspect]
     Dosage: 0.5 G, 2X/WEEK
     Route: 067

REACTIONS (3)
  - Pain in extremity [Recovering/Resolving]
  - Paraesthesia [Recovering/Resolving]
  - Headache [Recovering/Resolving]
